FAERS Safety Report 5976493-5 (Version None)
Quarter: 2008Q4

REPORT INFORMATION
  Report Type: 
  Country: None (occurrence: None)
  Receive Date: 20081126
  Receipt Date: 20081112
  Transmission Date: 20090506
  Serious: Yes (Hospitalization)
  Sender: FDA-Public Use
  Company Number: B0547278A

PATIENT
  Age: 79 Year
  Sex: Male

DRUGS (1)
  1. AMOX. TRIHYD+POT. CALVULAN. (FORMULATION UNKNOWN) (GENERIC) (AMOX. TRI [Suspect]
     Indication: CHOLESTEATOMA

REACTIONS (3)
  - CHOLESTASIS [None]
  - FAECES PALE [None]
  - HEPATOTOXICITY [None]
